FAERS Safety Report 11200732 (Version 1)
Quarter: 2015Q2

REPORT INFORMATION
  Report Type: Spontaneous
  Country: US (occurrence: US)
  Receive Date: 20150618
  Receipt Date: 20150618
  Transmission Date: 20150821
  Serious: Yes (Hospitalization)
  Sender: FDA-Public Use
  Company Number: PHHY2015US069320

PATIENT
  Age: 15 Year
  Sex: Male

DRUGS (6)
  1. DIPHENHYDRAMINE [Suspect]
     Active Substance: DIPHENHYDRAMINE
     Indication: PRODUCT USED FOR UNKNOWN INDICATION
     Route: 065
  2. DEXTROMETHORPHAN [Suspect]
     Active Substance: DEXTROMETHORPHAN
     Indication: PRODUCT USED FOR UNKNOWN INDICATION
     Route: 065
  3. PROPOFOL. [Suspect]
     Active Substance: PROPOFOL
     Indication: TACHYCARDIA
     Route: 041
  4. IBUPROFEN HEXAL [Suspect]
     Active Substance: IBUPROFEN
     Indication: PRODUCT USED FOR UNKNOWN INDICATION
     Route: 065
  5. PHENOBARBITAL. [Suspect]
     Active Substance: PHENOBARBITAL
     Indication: MYOCLONUS
     Dosage: 20 MG/KG, UNK
     Route: 042
  6. LORAZEPAM. [Suspect]
     Active Substance: LORAZEPAM
     Indication: AGITATION
     Dosage: 4 MG, UNK
     Route: 042

REACTIONS (12)
  - Hallucination [Recovering/Resolving]
  - Rhabdomyolysis [Recovering/Resolving]
  - Drug abuse [Recovering/Resolving]
  - Tachycardia [Recovering/Resolving]
  - Hypertension [Recovering/Resolving]
  - Mental status changes [Recovering/Resolving]
  - Serotonin syndrome [Recovering/Resolving]
  - Myoclonus [Recovering/Resolving]
  - Hyperthermia [Recovering/Resolving]
  - Respiratory rate decreased [Recovering/Resolving]
  - Drug ineffective [Unknown]
  - Agitation [Recovering/Resolving]
